FAERS Safety Report 12936982 (Version 1)
Quarter: 2016Q4

REPORT INFORMATION
  Report Type: Spontaneous
  Country: US (occurrence: US)
  Receive Date: 20161114
  Receipt Date: 20161114
  Transmission Date: 20170207
  Serious: Yes (Other)
  Sender: FDA-Public Use
  Company Number: US-PFIZER INC-2016525871

PATIENT
  Sex: Male

DRUGS (1)
  1. GABAPENTIN. [Suspect]
     Active Substance: GABAPENTIN

REACTIONS (5)
  - Abasia [Unknown]
  - Spinal cord injury [Unknown]
  - Tension [Unknown]
  - Drug ineffective [Unknown]
  - Neuropathy peripheral [Unknown]
